FAERS Safety Report 4886419-3 (Version None)
Quarter: 2006Q1

REPORT INFORMATION
  Report Type: 
  Country: None (occurrence: None)
  Receive Date: 20060120
  Receipt Date: 20050801
  Transmission Date: 20060701
  Serious: Yes (Hospitalization)
  Sender: FDA-Public Use
  Company Number: US-MERCK-0508USA00936

PATIENT
  Age: 72 Year
  Sex: Female
  Weight: 66 kg

DRUGS (10)
  1. VIOXX [Suspect]
     Indication: ARTHRITIS
     Route: 048
     Dates: start: 20010101
  2. VERAPAMIL [Concomitant]
     Route: 065
  3. LISINOPRIL [Concomitant]
     Route: 065
  4. MINOXIDIL [Concomitant]
     Route: 065
  5. ASPIRIN [Concomitant]
     Route: 048
  6. TYLENOL (CAPLET) [Concomitant]
     Route: 065
  7. ATENOLOL [Concomitant]
     Route: 065
  8. HYDROCHLOROTHIAZIDE [Concomitant]
     Route: 065
  9. LOVASTATIN [Concomitant]
     Route: 065
  10. LOVASTATIN [Concomitant]
     Route: 065

REACTIONS (2)
  - CEREBROVASCULAR ACCIDENT [None]
  - TRANSIENT ISCHAEMIC ATTACK [None]
